FAERS Safety Report 4427471-9 (Version None)
Quarter: 2004Q3

REPORT INFORMATION
  Report Type: 
  Country: None (occurrence: None)
  Receive Date: 20040816
  Receipt Date: 20040816
  Transmission Date: 20050211
  Serious: No
  Sender: FDA-Public Use
  Company Number: None

PATIENT
  Sex: Male
  Weight: 68 kg

DRUGS (1)
  1. VANCOMYCIN [Suspect]
     Indication: PLEURAL EFFUSION
     Dosage: 750 MG IV Q 24 H
     Dates: start: 20040616, end: 20040902

REACTIONS (1)
  - TINNITUS [None]
